FAERS Safety Report 6152123-7 (Version None)
Quarter: 2009Q2

REPORT INFORMATION
  Report Type: 
  Country: None (occurrence: None)
  Receive Date: 20090410
  Receipt Date: 20090330
  Transmission Date: 20091009
  Serious: Yes (Other)
  Sender: FDA-Public Use
  Company Number: JP-PFIZER INC-2009184030

PATIENT

DRUGS (2)
  1. CHAMPIX [Suspect]
     Indication: SMOKING CESSATION THERAPY
     Dosage: 1 MG, 2X/DAY
     Route: 048
     Dates: start: 20081023, end: 20090113
  2. CHAMPIX [Suspect]
     Indication: NICOTINE DEPENDENCE

REACTIONS (2)
  - BULIMIA NERVOSA [None]
  - MENTAL IMPAIRMENT [None]
